FAERS Safety Report 5086225-3 (Version None)
Quarter: 2006Q3

REPORT INFORMATION
  Report Type: 
  Country: None (occurrence: None)
  Receive Date: 20060823
  Receipt Date: 20060817
  Transmission Date: 20061208
  Serious: Yes (Hospitalization, Other)
  Sender: FDA-Public Use
  Company Number: US-JNJFOC-20060702708

PATIENT
  Sex: Male

DRUGS (5)
  1. REMICADE [Suspect]
     Route: 042
  2. REMICADE [Suspect]
     Route: 042
  3. REMICADE [Suspect]
     Indication: RHEUMATOID ARTHRITIS
     Route: 042
  4. ANTIBIOTICS [Suspect]
     Indication: INFECTION
  5. IV THERAPY [Suspect]
     Indication: INFECTION
     Route: 042

REACTIONS (4)
  - GALLBLADDER DISORDER [None]
  - INFECTION [None]
  - PAIN MANAGEMENT [None]
  - THROAT TIGHTNESS [None]
